FAERS Safety Report 14552881 (Version 2)
Quarter: 2018Q4

REPORT INFORMATION
  Report Type: Other
  Country: US (occurrence: US)
  Receive Date: 20180220
  Receipt Date: 20181031
  Transmission Date: 20190204
  Serious: Yes (Death)
  Sender: FDA-Public Use
  Company Number: US-ACTELION-A-CH2018-167386

PATIENT
  Age: 31 Year
  Sex: Female

DRUGS (6)
  1. EPOPROSTENOL SODIUM. [Suspect]
     Active Substance: EPOPROSTENOL SODIUM
     Indication: PULMONARY ARTERIAL HYPERTENSION
     Dosage: UNK
     Route: 042
  2. EPOPROSTENOL SODIUM. [Suspect]
     Active Substance: EPOPROSTENOL SODIUM
     Dosage: 8 NG/KG, PER MIN
     Route: 042
  3. TRIMETHOPRIM SULFAMETHOXAZOLE [Concomitant]
     Active Substance: SULFAMETHOXAZOLE\TRIMETHOPRIM
     Indication: PROPHYLAXIS
  4. METHOTREXATE. [Concomitant]
     Active Substance: METHOTREXATE
     Indication: STILL^S DISEASE
     Route: 065
  5. PREDNISONE. [Concomitant]
     Active Substance: PREDNISONE
     Indication: STILL^S DISEASE
     Route: 065
  6. TADALAFIL. [Concomitant]
     Active Substance: TADALAFIL
     Route: 048

REACTIONS (11)
  - Right ventricular failure [Fatal]
  - Condition aggravated [Fatal]
  - Pulmonary arterial hypertension [Fatal]
  - Leukocytosis [Fatal]
  - Hypotension [Fatal]
  - Tachycardia [Fatal]
  - Concomitant disease aggravated [Fatal]
  - Pulseless electrical activity [Fatal]
  - Acute respiratory distress syndrome [Fatal]
  - Lactic acidosis [Fatal]
  - Still^s disease [Fatal]
